FAERS Safety Report 7831572-2 (Version None)
Quarter: 2011Q4

REPORT INFORMATION
  Report Type: 
  Country: None (occurrence: None)
  Receive Date: 20111021
  Receipt Date: 20111011
  Transmission Date: 20120403
  Serious: No
  Sender: FDA-Public Use
  Company Number: US-B.I. PHARMACEUTICALS,INC./RIDGEFIELD-2011-BP-23989BP

PATIENT
  Sex: Female

DRUGS (2)
  1. SPIRIVA [Suspect]
     Indication: DYSPNOEA
  2. SPIRIVA [Suspect]
     Indication: COUGH
     Dosage: 18 MCG
     Route: 048
     Dates: start: 20111011, end: 20111011

REACTIONS (1)
  - INCORRECT ROUTE OF DRUG ADMINISTRATION [None]
